FAERS Safety Report 4745799-X (Version None)
Quarter: 2005Q3

REPORT INFORMATION
  Report Type: 
  Country: None (occurrence: None)
  Receive Date: 20050816
  Receipt Date: 20041027
  Transmission Date: 20060218
  Serious: Yes (Other)
  Sender: FDA-Public Use
  Company Number: 200413347JP

PATIENT
  Age: 46 Year
  Sex: Female
  Weight: 62 kg

DRUGS (8)
  1. ARAVA [Suspect]
     Indication: RHEUMATOID ARTHRITIS
     Route: 048
     Dates: start: 20031011, end: 20040514
  2. NEORAL [Concomitant]
     Indication: RHEUMATOID ARTHRITIS
     Route: 048
     Dates: end: 20031010
  3. MARZULENE S [Concomitant]
     Indication: RHEUMATOID ARTHRITIS
     Route: 048
  4. PREDONINE [Concomitant]
     Indication: RHEUMATOID ARTHRITIS
     Route: 048
  5. ULGUT [Concomitant]
     Indication: RHEUMATOID ARTHRITIS
     Route: 048
  6. LOXONIN [Concomitant]
     Indication: RHEUMATOID ARTHRITIS
     Route: 048
  7. ADOFEED [Concomitant]
     Dosage: DOSE: UNK
     Dates: end: 20040130
  8. METHOTREXATE [Concomitant]
     Dosage: DOSE: 6MG/WEEK
     Route: 048
     Dates: start: 20020330, end: 20030117

REACTIONS (5)
  - CARDIAC FAILURE CONGESTIVE [None]
  - HYPERTENSION [None]
  - IRON DEFICIENCY ANAEMIA [None]
  - PROTEIN URINE PRESENT [None]
  - PULMONARY OEDEMA [None]
